FAERS Safety Report 18430222 (Version 4)
Quarter: 2022Q3

REPORT INFORMATION
  Report Type: Report from Study
  Country: NL (occurrence: NL)
  Receive Date: 20201027
  Receipt Date: 20220707
  Transmission Date: 20221027
  Serious: Yes (Hospitalization)
  Sender: FDA-Public Use
  Company Number: NL-ABBVIE-20K-114-3621251-00

PATIENT
  Sex: Female

DRUGS (4)
  1. CARBIDOPA\LEVODOPA [Suspect]
     Active Substance: CARBIDOPA\LEVODOPA
     Indication: Parkinson^s disease
     Dosage: MD: 7.8 ML; CD: 2.4 ML/H; ED: 2.5 ML;
     Route: 050
     Dates: start: 20140304
  2. CARBIDOPA\LEVODOPA [Suspect]
     Active Substance: CARBIDOPA\LEVODOPA
     Dosage: MD: 7.8 ML; CD: 2.3 ML/H; ED: 2.5 ML;
     Route: 050
  3. CARBIDOPA\LEVODOPA [Suspect]
     Active Substance: CARBIDOPA\LEVODOPA
     Dosage: MD: 7.8 ML; CD: 2.5 ML/H; ED: 2.5 ML;
     Route: 050
  4. MGA 012 [Concomitant]
     Indication: Product used for unknown indication
     Dosage: 3 BEFORE THE NIGHT AND 2 DURING THE NIGHT

REACTIONS (21)
  - Cataract [Recovered/Resolved]
  - Paraesthesia [Not Recovered/Not Resolved]
  - Hyperphagia [Not Recovered/Not Resolved]
  - Restless legs syndrome [Unknown]
  - Balance disorder [Not Recovered/Not Resolved]
  - Fall [Not Recovered/Not Resolved]
  - Gait disturbance [Not Recovered/Not Resolved]
  - Nausea [Not Recovered/Not Resolved]
  - Hallucination, visual [Not Recovered/Not Resolved]
  - Dizziness postural [Unknown]
  - Stoma site erythema [Not Recovered/Not Resolved]
  - Psychiatric symptom [Not Recovered/Not Resolved]
  - Tremor [Not Recovered/Not Resolved]
  - Dyskinesia [Not Recovered/Not Resolved]
  - Posture abnormal [Not Recovered/Not Resolved]
  - Sleep disorder [Not Recovered/Not Resolved]
  - Pollakiuria [Not Recovered/Not Resolved]
  - Decreased appetite [Recovered/Resolved]
  - Freezing phenomenon [Not Recovered/Not Resolved]
  - Walking aid user [Not Recovered/Not Resolved]
  - Weight increased [Unknown]
